FAERS Safety Report 7380000-2 (Version None)
Quarter: 2011Q1

REPORT INFORMATION
  Report Type: 
  Country: None (occurrence: None)
  Receive Date: 20110318
  Receipt Date: 20110310
  Transmission Date: 20110831
  Serious: Yes (Hospitalization)
  Sender: FDA-Public Use
  Company Number: 2011SP010918

PATIENT
  Age: 7 Week
  Sex: Male
  Weight: 2.8 kg

DRUGS (6)
  1. MOPRAL [Concomitant]
  2. MIDAZOLAM HCL [Suspect]
     Indication: PRODUCT USED FOR UNKNOWN INDICATION
     Dosage: 1.5 MCG/KG
     Dates: start: 20110101, end: 20110210
  3. SUFENTA PRESERVATIVE FREE [Concomitant]
  4. NORCURON (VECURONIUM BROMIDE /00600002/) [Suspect]
     Dosage: 1 ML; 1 ML;BID
     Dates: start: 20110120, end: 20110208
  5. NORCURON (VECURONIUM BROMIDE /00600002/) [Suspect]
     Dosage: 1 ML; 1 ML;BID
     Dates: start: 20110209
  6. VANCOMYCINE [Concomitant]

REACTIONS (2)
  - LACTIC ACIDOSIS [None]
  - HYPOTENSION [None]
